FAERS Safety Report 20700383 (Version 1)
Quarter: 2022Q2

REPORT INFORMATION
  Report Type: Spontaneous
  Country: US (occurrence: None)
  Receive Date: 20220410
  Receipt Date: 20220410
  Transmission Date: 20220721
  Serious: Yes (Hospitalization)
  Sender: FDA-Public Use
  Company Number: None

PATIENT
  Age: 72 Year
  Sex: Female
  Weight: 75.15 kg

DRUGS (5)
  1. OZEMPIC [Suspect]
     Active Substance: SEMAGLUTIDE
     Indication: Weight decreased
     Route: 058
     Dates: start: 20220329
  2. LEXAPRO [Concomitant]
     Active Substance: ESCITALOPRAM OXALATE
  3. ADDERALL [Concomitant]
     Active Substance: AMPHETAMINE ASPARTATE\AMPHETAMINE SULFATE\DEXTROAMPHETAMINE SACCHARATE\DEXTROAMPHETAMINE SULFATE
  4. MULTI [Concomitant]
  5. VITAMIN B12 [Concomitant]
     Active Substance: CYANOCOBALAMIN

REACTIONS (17)
  - Nausea [None]
  - Vomiting [None]
  - Abdominal pain upper [None]
  - Chest pain [None]
  - Headache [None]
  - Flatulence [None]
  - Constipation [None]
  - Dry mouth [None]
  - Dyspepsia [None]
  - Dizziness [None]
  - Malaise [None]
  - Lethargy [None]
  - Thrombosis [None]
  - Ageusia [None]
  - Speech disorder [None]
  - Insomnia [None]
  - Dysphonia [None]

NARRATIVE: CASE EVENT DATE: 20220329
